FAERS Safety Report 8111152-4 (Version None)
Quarter: 2012Q1

REPORT INFORMATION
  Report Type: 
  Country: None (occurrence: None)
  Receive Date: 20120203
  Receipt Date: 20110518
  Transmission Date: 20120608
  Serious: No
  Sender: FDA-Public Use
  Company Number: US-GLAXOSMITHKLINE-A0927848A

PATIENT
  Age: 39 Year
  Sex: Male

DRUGS (5)
  1. LAMICTAL [Suspect]
     Indication: BIPOLAR DISORDER
     Dosage: 25MG PER DAY
     Route: 048
     Dates: start: 20110504
  2. DEPAKOTE [Concomitant]
  3. LITHIUM CARBONATE [Concomitant]
  4. AMBIEN [Concomitant]
  5. FENTANYL CITRATE [Concomitant]

REACTIONS (1)
  - HEADACHE [None]
